APPROVED DRUG PRODUCT: RELISTOR
Active Ingredient: METHYLNALTREXONE BROMIDE
Strength: 12MG/0.6ML (12MG/0.6ML)
Dosage Form/Route: SOLUTION;SUBCUTANEOUS
Application: N021964 | Product #001
Applicant: SALIX PHARMACEUTICALS INC
Approved: Apr 24, 2008 | RLD: Yes | RS: Yes | Type: RX

PATENTS:
Patent 9180125 | Expires: Sep 30, 2029
Patent 8822490 | Expires: Sep 30, 2029
Patent 8247425 | Expires: Dec 31, 2030
Patent 12303592 | Expires: Aug 3, 2027
Patent 12303592 | Expires: Aug 3, 2027
Patent 9492445 | Expires: Sep 30, 2029
Patent 8420663 | Expires: Sep 30, 2029